FAERS Safety Report 7889410-8 (Version None)
Quarter: 2011Q4

REPORT INFORMATION
  Report Type: 
  Country: None (occurrence: None)
  Receive Date: 20111101
  Receipt Date: 20111020
  Transmission Date: 20120403
  Serious: Yes (Hospitalization)
  Sender: FDA-Public Use
  Company Number: 2011SP048093

PATIENT
  Age: 58 Year
  Sex: Female

DRUGS (3)
  1. BOCEPREVIR (SCH-503034) [Suspect]
     Indication: HEPATITIS C
     Dosage: 800 MG;TID;PO
     Route: 048
     Dates: start: 20110925
  2. PEGINTERFERON ALFA-2B [Concomitant]
  3. REBETOL [Concomitant]

REACTIONS (1)
  - NO ADVERSE EVENT [None]
